FAERS Safety Report 19728495 (Version 2)
Quarter: 2021Q3

REPORT INFORMATION
  Report Type: Spontaneous
  Country: US (occurrence: US)
  Receive Date: 20210820
  Receipt Date: 20210928
  Transmission Date: 20211014
  Serious: No
  Sender: FDA-Public Use
  Company Number: US-BOIRON INC.-2021BOR00114

PATIENT
  Age: 7 Month
  Sex: Female
  Weight: 7.71 kg

DRUGS (3)
  1. CAMILIA [Suspect]
     Active Substance: HOMEOPATHICS
     Indication: TOOTHACHE
     Dosage: 1 DROP, 3X/DAY (EVERY 8 HOURS)
     Route: 048
     Dates: start: 202107, end: 20210720
  2. CAMILIA [Suspect]
     Active Substance: HOMEOPATHICS
     Indication: TEETHING
  3. VITAMIN D [Concomitant]
     Active Substance: VITAMIN D NOS

REACTIONS (1)
  - Muscle spasms [Recovered/Resolved]

NARRATIVE: CASE EVENT DATE: 202107
